FAERS Safety Report 8998101 (Version 1)
Quarter: 2013Q1

REPORT INFORMATION
  Report Type: Spontaneous
  Country: US (occurrence: US)
  Receive Date: 20130104
  Receipt Date: 20130104
  Transmission Date: 20140127
  Serious: No
  Sender: FDA-Public Use
  Company Number: US-BAYER-2012-136274

PATIENT
  Age: 32 Year
  Sex: Female
  Weight: 68.03 kg

DRUGS (3)
  1. ALEVE CAPLET/TABLET,MIDOL EXTENDED RELIEF CAPLET [Suspect]
     Indication: DYSMENORRHOEA
     Dosage: 2 DF, PRN
     Route: 048
     Dates: start: 201106
  2. MIDOL [Suspect]
     Route: 048
  3. PRE NATAL CHEWY [Concomitant]

REACTIONS (1)
  - Drug ineffective [None]
